FAERS Safety Report 4358846-4 (Version None)
Quarter: 2004Q2

REPORT INFORMATION
  Report Type: 
  Country: None (occurrence: None)
  Receive Date: 20040512
  Receipt Date: 20040430
  Transmission Date: 20050107
  Serious: Yes (Hospitalization)
  Sender: FDA-Public Use
  Company Number: 2004014936

PATIENT
  Age: 63 Year
  Sex: Male
  Weight: 55 kg

DRUGS (9)
  1. LIPITOR [Suspect]
     Indication: HYPERLIPIDAEMIA
     Dosage: 10 MG (DAILY), ORAL
     Route: 048
     Dates: start: 20030501, end: 20040213
  2. PIOGLITAZONE HCL [Suspect]
     Indication: DIABETES MELLITUS NON-INSULIN-DEPENDENT
     Dosage: 30 MG (DAILY), ORAL
     Route: 048
     Dates: start: 20000901
  3. GLYBURIDE [Suspect]
     Indication: DIABETES MELLITUS NON-INSULIN-DEPENDENT
     Dosage: 7.5 MG (TID), ORAL
     Route: 048
     Dates: start: 20000901
  4. ETHYL ICOSAPENTATE (ETHYL ICOSAPENTATE) [Suspect]
     Indication: HYPERLIPIDAEMIA
     Dosage: 900 MG (TID), ORAL
     Route: 048
     Dates: start: 20030501, end: 20040213
  5. VOGIBOSE [Concomitant]
  6. VOGLIBOSE (VOGLIBOSE) [Concomitant]
  7. GLIMEPIRIDE [Concomitant]
  8. ACARBOSE (ACARBOSE) [Concomitant]
  9. BASIN(VOGLIBOSE) [Concomitant]

REACTIONS (4)
  - BLOOD CHOLESTEROL DECREASED [None]
  - CHILLS [None]
  - DIZZINESS POSTURAL [None]
  - HYPOGLYCAEMIA [None]
